FAERS Safety Report 10866379 (Version 1)
Quarter: 2015Q1

REPORT INFORMATION
  Report Type: Spontaneous
  Country: CA (occurrence: None)
  Receive Date: 20150219
  Receipt Date: 20150219
  Transmission Date: 20150721
  Serious: No
  Sender: FDA-Public Use
  Company Number: None

PATIENT
  Age: 44 Year
  Sex: Female
  Weight: 65.77 kg

DRUGS (1)
  1. WOMENS ROGAINE [Suspect]
     Active Substance: MINOXIDIL
     Indication: ALOPECIA
     Dosage: APPLIED TO A SURFACE, USUALLY THE SKIN
     Dates: start: 20141124, end: 20150217

REACTIONS (1)
  - Hair growth abnormal [None]

NARRATIVE: CASE EVENT DATE: 20150207
